FAERS Safety Report 12486190 (Version 1)
Quarter: 2016Q2

REPORT INFORMATION
  Report Type: Spontaneous
  Country: US (occurrence: US)
  Receive Date: 20160621
  Receipt Date: 20160621
  Transmission Date: 20160815
  Serious: No
  Sender: FDA-Public Use
  Company Number: GXBR2016US001812

PATIENT
  Age: 44 Year
  Sex: Female

DRUGS (1)
  1. GLATOPA [Suspect]
     Active Substance: GLATIRAMER ACETATE
     Indication: PRODUCT USED FOR UNKNOWN INDICATION
     Dosage: UNK DF, UNK
     Route: 065

REACTIONS (12)
  - Dysgeusia [Unknown]
  - Nausea [Unknown]
  - Dyspnoea [Unknown]
  - Flushing [Unknown]
  - Heart rate increased [Unknown]
  - Injection site reaction [Unknown]
  - Swelling [Unknown]
  - Hyperhidrosis [Unknown]
  - Syncope [Unknown]
  - Abdominal distension [Unknown]
  - Chills [Unknown]
  - Dizziness [Unknown]
